FAERS Safety Report 5309881-0 (Version None)
Quarter: 2007Q2

REPORT INFORMATION
  Report Type: 
  Country: None (occurrence: None)
  Receive Date: 20070427
  Receipt Date: 20070416
  Transmission Date: 20071010
  Serious: Yes (Hospitalization)
  Sender: FDA-Public Use
  Company Number: FR-ROCHE-493475

PATIENT
  Age: 69 Year
  Sex: Male

DRUGS (3)
  1. XELODA [Suspect]
     Route: 048
     Dates: end: 20070220
  2. CISPLATIN [Suspect]
     Dosage: DRUG REPORTED AS CISPLATINE MERCK.
     Route: 042
     Dates: end: 20070220
  3. FARMORUBICINE [Suspect]
     Route: 042
     Dates: end: 20070220

REACTIONS (1)
  - FACIAL PALSY [None]
